FAERS Safety Report 5314613-6 (Version None)
Quarter: 2007Q2

REPORT INFORMATION
  Report Type: 
  Country: None (occurrence: None)
  Receive Date: 20070427
  Receipt Date: 20040422
  Transmission Date: 20071010
  Serious: Yes (Life-Threatening)
  Sender: FDA-Public Use
  Company Number: 2007-157806-NL

PATIENT
  Age: 64 Year
  Sex: Male

DRUGS (2)
  1. DANAPAROID [Suspect]
     Indication: HEPARIN-INDUCED THROMBOCYTOPENIA
  2. HEPARIN [Concomitant]

REACTIONS (9)
  - ABDOMINAL PAIN [None]
  - ADRENAL INSUFFICIENCY [None]
  - CIRCULATORY COLLAPSE [None]
  - CONFUSIONAL STATE [None]
  - HAEMORRHAGE [None]
  - HEPARIN-INDUCED THROMBOCYTOPENIA [None]
  - NECROSIS [None]
  - PYREXIA [None]
  - URINE SODIUM INCREASED [None]
